FAERS Safety Report 18898444 (Version 7)
Quarter: 2021Q4

REPORT INFORMATION
  Report Type: Report from Study
  Country: CA (occurrence: CA)
  Receive Date: 20210216
  Receipt Date: 20211222
  Transmission Date: 20220303
  Serious: Yes (Hospitalization)
  Sender: FDA-Public Use
  Company Number: CA-GLAXOSMITHKLINE-CA2020AMR248314

PATIENT
  Age: 51 Year
  Sex: Female

DRUGS (4)
  1. MEPOLIZUMAB [Suspect]
     Active Substance: MEPOLIZUMAB
     Indication: Asthma
     Dosage: 100 MG, Z MONTHLY
     Route: 058
     Dates: start: 20201113
  2. MEPOLIZUMAB [Suspect]
     Active Substance: MEPOLIZUMAB
     Dosage: 100 MG, Z MONTHLY
     Route: 058
  3. MEPOLIZUMAB [Suspect]
     Active Substance: MEPOLIZUMAB
     Indication: Asthma
     Dosage: 100 MG, Z, SC EVERY 4 WEEKS
     Route: 058
  4. MEPOLIZUMAB [Suspect]
     Active Substance: MEPOLIZUMAB
     Indication: Asthma
     Dosage: 100 MG, Z EVERY 4 WEEKS
     Route: 058
     Dates: start: 20201113

REACTIONS (9)
  - Central venous catheterisation [Recovered/Resolved]
  - Hypertension [Recovered/Resolved]
  - Nervousness [Unknown]
  - Dialysis [Unknown]
  - Blood pressure fluctuation [Unknown]
  - Heart rate increased [Recovered/Resolved]
  - Feeling hot [Unknown]
  - Fatigue [Unknown]
  - Epistaxis [Unknown]

NARRATIVE: CASE EVENT DATE: 20201211
